FAERS Safety Report 9615325 (Version 1)
Quarter: 2013Q4

REPORT INFORMATION
  Report Type: Spontaneous
  Country: US (occurrence: US)
  Receive Date: 20131011
  Receipt Date: 20131011
  Transmission Date: 20140711
  Serious: No
  Sender: FDA-Public Use
  Company Number: US-PURDUE-USA-2013-0098670

PATIENT
  Age: 27 Year
  Sex: Female

DRUGS (1)
  1. BUTRANS [Suspect]
     Indication: DYSTONIA
     Dosage: 10 MCG, 1/WEEK
     Route: 062
     Dates: start: 20130129

REACTIONS (4)
  - Application site pruritus [Not Recovered/Not Resolved]
  - Application site erythema [Not Recovered/Not Resolved]
  - Application site pain [Not Recovered/Not Resolved]
  - Product colour issue [Unknown]
